FAERS Safety Report 5489342-9 (Version None)
Quarter: 2007Q4

REPORT INFORMATION
  Report Type: 
  Country: None (occurrence: None)
  Receive Date: 20071005
  Receipt Date: 20070606
  Transmission Date: 20080405
  Serious: No
  Sender: FDA-Public Use
  Company Number: PHEH2007US08424

PATIENT
  Sex: Female

DRUGS (2)
  1. TEKTURNA [Suspect]
     Indication: HYPERTENSION
     Dosage: 150MG, ORAL;   300MG, ORAL
     Route: 048
     Dates: end: 20070602
  2. TEKTURNA [Suspect]
     Indication: HYPERTENSION
     Dosage: 150MG, ORAL;   300MG, ORAL
     Route: 048
     Dates: start: 20070517

REACTIONS (4)
  - COUGH [None]
  - MUSCLE SPASTICITY [None]
  - PULMONARY CONGESTION [None]
  - RHINORRHOEA [None]
